FAERS Safety Report 23738580 (Version 1)
Quarter: 2024Q2

REPORT INFORMATION
  Report Type: Spontaneous
  Country: CA (occurrence: CA)
  Receive Date: 20240412
  Receipt Date: 20240412
  Transmission Date: 20240716
  Serious: Yes (Hospitalization)
  Sender: FDA-Public Use
  Company Number: CA-ELI_LILLY_AND_COMPANY-CA202404003938

PATIENT
  Sex: Female

DRUGS (5)
  1. GLUCAGON [Suspect]
     Active Substance: GLUCAGON\GLUCAGON HYDROCHLORIDE\WATER
     Indication: Hypoglycaemia neonatal
     Dosage: 1 MG, DAILY
     Route: 065
  2. FLUDROCORTISONE [Suspect]
     Active Substance: FLUDROCORTISONE
     Indication: Adrenal insufficiency
     Dosage: UNK, UNKNOWN
     Route: 065
  3. HYDROCORTISONE [Suspect]
     Active Substance: HYDROCORTISONE
     Indication: Adrenal insufficiency
     Dosage: UNK, UNKNOWN
     Route: 065
  4. DEXTROSE AND SODIUM CHLORIDE [Concomitant]
     Active Substance: DEXTROSE MONOHYDRATE\SODIUM CHLORIDE
     Indication: Hypoglycaemia neonatal
     Dosage: UNK, UNKNOWN
     Route: 065
  5. POTASSIUM CHLORIDE [Concomitant]
     Active Substance: POTASSIUM CHLORIDE
     Indication: Hypoglycaemia neonatal
     Dosage: 30 MMOL/L

REACTIONS (4)
  - Hyponatraemia [Recovered/Resolved]
  - Neonatal seizure [Recovered/Resolved]
  - Adrenal insufficiency neonatal [Recovered/Resolved]
  - Thrombocytopenia [Recovered/Resolved]
